FAERS Safety Report 5217436-1 (Version None)
Quarter: 2007Q1

REPORT INFORMATION
  Report Type: 
  Country: None (occurrence: None)
  Receive Date: 20070124
  Receipt Date: 20060228
  Transmission Date: 20070707
  Serious: No
  Sender: FDA-Public Use
  Company Number: US-GLAXOSMITHKLINE-A0595290A

PATIENT
  Age: 47 Year
  Sex: Male

DRUGS (6)
  1. PAXIL CR [Suspect]
     Indication: DEPRESSION
     Route: 048
     Dates: start: 20050101
  2. PAROXETINE HCL [Suspect]
     Indication: DEPRESSION
     Dosage: 40MGD UNKNOWN
     Route: 048
     Dates: start: 20050101
  3. CLONAZEPAM [Concomitant]
  4. ZOCOR [Concomitant]
  5. NADOLOL [Concomitant]
  6. PAXIL [Concomitant]
     Indication: DEPRESSION
     Route: 048
     Dates: end: 20051001

REACTIONS (2)
  - DEPRESSION [None]
  - DRUG INEFFECTIVE [None]
